FAERS Safety Report 5016652-1 (Version None)
Quarter: 2006Q2

REPORT INFORMATION
  Report Type: 
  Country: None (occurrence: None)
  Receive Date: 20060602
  Receipt Date: 20060522
  Transmission Date: 20061013
  Serious: Yes (Other)
  Sender: FDA-Public Use
  Company Number: US-JNJFOC-20060600169

PATIENT

DRUGS (1)
  1. ORTHO EVRA [Suspect]

REACTIONS (1)
  - PREMATURE BABY [None]
